FAERS Safety Report 17064902 (Version 1)
Quarter: 2019Q4

REPORT INFORMATION
  Report Type: Spontaneous
  Country: US (occurrence: US)
  Receive Date: 20191024
  Receipt Date: 20191024
  Transmission Date: 20200122
  Serious: No
  Sender: FDA-Public Use
  Company Number: None

PATIENT
  Age: 16 Year
  Sex: Male

DRUGS (1)
  1. NORDITROPIN [Suspect]
     Active Substance: SOMATROPIN
     Indication: BODY HEIGHT BELOW NORMAL
     Dosage: ?          OTHER DOSE:1.3MG;?
     Route: 058
     Dates: start: 20190524

REACTIONS (2)
  - Nipple disorder [None]
  - Skin induration [None]

NARRATIVE: CASE EVENT DATE: 20190928
